FAERS Safety Report 24963103 (Version 1)
Quarter: 2025Q1

REPORT INFORMATION
  Report Type: Report from Study
  Country: US (occurrence: US)
  Receive Date: 20250213
  Receipt Date: 20250213
  Transmission Date: 20250408
  Serious: Yes (Other)
  Sender: ABBVIE
  Company Number: US-ABBVIE-6126415

PATIENT
  Sex: Female

DRUGS (1)
  1. HUMIRA [Suspect]
     Active Substance: ADALIMUMAB
     Indication: Hidradenitis
     Route: 058
     Dates: start: 20210517

REACTIONS (3)
  - Medical device site joint discomfort [Recovering/Resolving]
  - Medical device implantation [Recovering/Resolving]
  - Hidradenitis [Not Recovered/Not Resolved]
